FAERS Safety Report 6427812-7 (Version None)
Quarter: 2009Q4

REPORT INFORMATION
  Report Type: 
  Country: None (occurrence: None)
  Receive Date: 20091105
  Receipt Date: 20091102
  Transmission Date: 20100525
  Serious: Yes (Hospitalization, Disabling)
  Sender: FDA-Public Use
  Company Number: DE-WYE-G04768209

PATIENT
  Age: 45 Year
  Sex: Female

DRUGS (5)
  1. TREVILOR RETARD [Suspect]
     Indication: DEPRESSION
     Dosage: FEEDING DOSE INCREASE TO 225 MG PER DAY ON AN UNKNOWN DATE BETWEEN MAY AND JUL-2007
     Route: 048
  2. TREVILOR RETARD [Suspect]
     Dosage: DOSE REDUCTION TO 150 MG PER DAY FROM AN UNKNOWN DATE
     Route: 048
  3. EUTHROID-1 [Concomitant]
     Route: 048
  4. LITHIUM CARBONATE [Concomitant]
     Indication: DEPRESSION
     Dosage: 250 MG PER DAY FOR APPROX. 15 YEARS
     Route: 048
  5. MIRTAZAPINE [Concomitant]
     Indication: SLEEP DISORDER
     Dosage: LOW DOSE
     Route: 048
     Dates: start: 20070101, end: 20090501

REACTIONS (3)
  - PERONEAL NERVE PALSY [None]
  - POLYNEUROPATHY [None]
  - SLEEP DISORDER [None]
